FAERS Safety Report 5386636-2 (Version None)
Quarter: 2007Q3

REPORT INFORMATION
  Report Type: 
  Country: None (occurrence: None)
  Receive Date: 20070713
  Receipt Date: 20070607
  Transmission Date: 20080115
  Serious: Yes (Other)
  Sender: FDA-Public Use
  Company Number: US-SANOFI-SYNTHELABO-A03200704456

PATIENT
  Sex: Male

DRUGS (8)
  1. ATIVAN [Concomitant]
     Route: 065
  2. NITROGLYCERIN [Concomitant]
     Route: 065
  3. MINITRAN PATCH [Concomitant]
     Route: 065
  4. ZESTRIL [Concomitant]
     Route: 048
  5. CELEXA [Concomitant]
     Route: 048
  6. ASPIRIN [Concomitant]
     Route: 048
  7. LOVASTATIN [Concomitant]
     Route: 065
  8. PLAVIX [Suspect]
     Indication: CORONARY ARTERY DISEASE
     Dosage: UNK
     Route: 048
     Dates: start: 20061107, end: 20061114

REACTIONS (1)
  - PAIN IN EXTREMITY [None]
